FAERS Safety Report 25126286 (Version 1)
Quarter: 2025Q1

REPORT INFORMATION
  Report Type: Report from Study
  Country: CA (occurrence: CA)
  Receive Date: 20250327
  Receipt Date: 20250327
  Transmission Date: 20250409
  Serious: Yes (Hospitalization, Other)
  Sender: ABBVIE
  Company Number: CA-ABBVIE-6194392

PATIENT
  Age: 64 Year
  Sex: Male

DRUGS (2)
  1. VENCLEXTA [Suspect]
     Active Substance: VENETOCLAX
     Indication: Acute myeloid leukaemia
     Dosage: DOSE STRENGTH:100 MG?COMPLETED 2 CYCLES OF VENCLEXTA
     Route: 048
     Dates: start: 20240205
  2. AZACITIDINE [Concomitant]
     Active Substance: AZACITIDINE
     Indication: Product used for unknown indication

REACTIONS (1)
  - Stem cell transplant [Unknown]

NARRATIVE: CASE EVENT DATE: 20240531
